FAERS Safety Report 18490836 (Version 1)
Quarter: 2020Q4

REPORT INFORMATION
  Report Type: Spontaneous
  Country: US (occurrence: US)
  Receive Date: 20201111
  Receipt Date: 20201111
  Transmission Date: 20210114
  Serious: Yes (Hospitalization)
  Sender: FDA-Public Use
  Company Number: None

PATIENT
  Sex: Female

DRUGS (9)
  1. FLUOXETINE [Concomitant]
     Active Substance: FLUOXETINE HYDROCHLORIDE
  2. FENOFIBRATE. [Concomitant]
     Active Substance: FENOFIBRATE
  3. FOLIC ACID. [Concomitant]
     Active Substance: FOLIC ACID
  4. COSENTYX [Suspect]
     Active Substance: SECUKINUMAB
     Indication: JOINT ANKYLOSIS
     Dosage: ?          OTHER FREQUENCY:EVERY FOUR WEEKS;?
     Route: 058
  5. METHOTREXATE. [Concomitant]
     Active Substance: METHOTREXATE
  6. HYDROCHLOROT [Concomitant]
     Active Substance: HYDROCHLOROTHIAZIDE
  7. GABAPENTIN. [Concomitant]
     Active Substance: GABAPENTIN
  8. ATENLOL [Concomitant]
  9. PREMIPEXOLE [Concomitant]

REACTIONS (1)
  - Surgery [None]
